FAERS Safety Report 5903195-3 (Version None)
Quarter: 2008Q3

REPORT INFORMATION
  Report Type: 
  Country: None (occurrence: None)
  Receive Date: 20080926
  Receipt Date: 20080807
  Transmission Date: 20090109
  Serious: Yes (Hospitalization)
  Sender: FDA-Public Use
  Company Number: 2008PL000136

PATIENT
  Age: 40 Year
  Sex: Male
  Weight: 49.8957 kg

DRUGS (3)
  1. ALLOPURINOL [Suspect]
     Dosage: 300 MG;QD;
  2. AMLODEPINE [Concomitant]
  3. LEVOTHYROXINE SODIUM [Concomitant]

REACTIONS (8)
  - ARTHRITIS [None]
  - CYST [None]
  - GAIT DISTURBANCE [None]
  - GOUT [None]
  - GOUTY TOPHUS [None]
  - HAEMOGLOBIN DECREASED [None]
  - SACROILIITIS [None]
  - SKIN NODULE [None]
